FAERS Safety Report 19163815 (Version 1)
Quarter: 2021Q2

REPORT INFORMATION
  Report Type: Spontaneous
  Country: AR (occurrence: AR)
  Receive Date: 20210421
  Receipt Date: 20210421
  Transmission Date: 20210717
  Serious: Yes (Other)
  Sender: FDA-Public Use
  Company Number: AR-PFIZER INC-2021401418

PATIENT
  Age: 80 Year
  Sex: Female

DRUGS (1)
  1. IBRANCE [Suspect]
     Active Substance: PALBOCICLIB
     Indication: BREAST CANCER METASTATIC
     Dosage: 100 MG, CYCLIC (DAILY, SCHEME 3X1)
     Dates: start: 20180604

REACTIONS (18)
  - Contusion [Unknown]
  - Feeling abnormal [Unknown]
  - Limb injury [Unknown]
  - Syncope [Unknown]
  - Asthenia [Unknown]
  - Feeding disorder [Unknown]
  - Dyspnoea [Unknown]
  - Blood test abnormal [Unknown]
  - Feeling of despair [Unknown]
  - Diarrhoea [Unknown]
  - Gait inability [Unknown]
  - Pain in extremity [Unknown]
  - Muscular weakness [Unknown]
  - Vomiting [Unknown]
  - Malaise [Unknown]
  - Weight decreased [Unknown]
  - Fall [Unknown]
  - Gingival injury [Unknown]

NARRATIVE: CASE EVENT DATE: 2021
